FAERS Safety Report 6037741-9 (Version None)
Quarter: 2009Q1

REPORT INFORMATION
  Report Type: 
  Country: None (occurrence: None)
  Receive Date: 20090113
  Receipt Date: 20081231
  Transmission Date: 20090719
  Serious: Yes (Other)
  Sender: FDA-Public Use
  Company Number: 232140K08USA

PATIENT
  Age: 62 Year
  Sex: Male

DRUGS (2)
  1. REBIF [Suspect]
     Indication: MULTIPLE SCLEROSIS
     Dosage: 44 MCG, 3 IN 1 WEEKS, SUBCUTANEOUS
     Route: 058
     Dates: start: 20080527
  2. DILANTIN (PHENYTOIN /00017401/) [Concomitant]

REACTIONS (6)
  - CONTUSION [None]
  - CONVULSION [None]
  - FAECAL INCONTINENCE [None]
  - FALL [None]
  - HAEMORRHAGE [None]
  - MUSCULOSKELETAL STIFFNESS [None]
